FAERS Safety Report 8407582-3 (Version None)
Quarter: 2012Q2

REPORT INFORMATION
  Report Type: 
  Country: None (occurrence: None)
  Receive Date: 20120604
  Receipt Date: 20120524
  Transmission Date: 20120825
  Serious: Yes (Death, Other)
  Sender: FDA-Public Use
  Company Number: CN-JNJFOC-20120519915

PATIENT

DRUGS (2)
  1. SPORANOX [Suspect]
     Indication: ORAL FUNGAL INFECTION
     Dosage: 4-6 WEEKS
     Route: 048
  2. ITRACONAZOLE [Suspect]
     Indication: ORAL FUNGAL INFECTION
     Dosage: FOR 4-6 WEEKS
     Route: 048

REACTIONS (2)
  - FUNGAL INFECTION [None]
  - PNEUMONIA FUNGAL [None]
